FAERS Safety Report 4307669-0 (Version None)
Quarter: 2004Q1

REPORT INFORMATION
  Report Type: 
  Country: None (occurrence: None)
  Receive Date: 20040226
  Receipt Date: 20040218
  Transmission Date: 20041129
  Serious: Yes (Hospitalization, Other)
  Sender: FDA-Public Use
  Company Number: DEWYE589918FEB04

PATIENT

DRUGS (2)
  1. SIROLIMUS (SIROLIMUS, UNSPEC, 0) [Suspect]
  2. TACROLIMUS (TACROLIMUS) [Concomitant]

REACTIONS (1)
  - HAEMATOMA [None]
